FAERS Safety Report 7939943-0 (Version None)
Quarter: 2011Q4

REPORT INFORMATION
  Report Type: 
  Country: None (occurrence: None)
  Receive Date: 20111125
  Receipt Date: 20111121
  Transmission Date: 20120403
  Serious: Yes (Other)
  Sender: FDA-Public Use
  Company Number: PHHY2011CA102477

PATIENT
  Sex: Female

DRUGS (1)
  1. ZOLEDRONOC ACID [Suspect]
     Indication: OSTEOPOROSIS
     Dosage: UNK
     Route: 042
     Dates: start: 20100105

REACTIONS (4)
  - BLOOD HEAVY METAL INCREASED [None]
  - BLOOD CHROMIUM INCREASED [None]
  - MASS [None]
  - PROCEDURAL COMPLICATION [None]
